FAERS Safety Report 7345648-X (Version None)
Quarter: 2011Q1

REPORT INFORMATION
  Report Type: 
  Country: None (occurrence: None)
  Receive Date: 20110310
  Receipt Date: 20100203
  Transmission Date: 20110831
  Serious: Yes (Other)
  Sender: FDA-Public Use
  Company Number: B0631543A

PATIENT
  Sex: Female
  Weight: 60.4 kg

DRUGS (1)
  1. PAZOPANIB [Suspect]
     Indication: SARCOMA
     Dates: start: 20090813, end: 20100205

REACTIONS (1)
  - HAEMOGLOBIN DECREASED [None]
